FAERS Safety Report 7291475-1 (Version None)
Quarter: 2011Q1

REPORT INFORMATION
  Report Type: 
  Country: None (occurrence: None)
  Receive Date: 20110214
  Receipt Date: 20110202
  Transmission Date: 20110831
  Serious: Yes (Other)
  Sender: FDA-Public Use
  Company Number: GB-ELI_LILLY_AND_COMPANY-GB201102001491

PATIENT
  Age: 12 Year
  Sex: Male

DRUGS (3)
  1. STRATTERA [Suspect]
     Dosage: UNK, UNK
  2. METHYLPHENIDATE [Concomitant]
     Dosage: UNK, UNK
  3. RISPERDONE [Concomitant]
     Dosage: UNK, UNK

REACTIONS (1)
  - ELECTROCARDIOGRAM QT PROLONGED [None]
